FAERS Safety Report 12183639 (Version 4)
Quarter: 2016Q2

REPORT INFORMATION
  Report Type: Spontaneous
  Country: US (occurrence: US)
  Receive Date: 20160316
  Receipt Date: 20160408
  Transmission Date: 20160815
  Serious: No
  Sender: FDA-Public Use
  Company Number: US-PFIZER INC-2016143941

PATIENT
  Age: 70 Year
  Sex: Female
  Weight: 97.52 kg

DRUGS (4)
  1. PREDNISONE. [Concomitant]
     Active Substance: PREDNISONE
  2. XELJANZ [Suspect]
     Active Substance: TOFACITINIB CITRATE
     Dosage: 1 DF, 2X/DAY,^5^, ONE IN THE MORNING AND ONE AT NIGHT
     Dates: start: 201602
  3. ELIQUIS [Suspect]
     Active Substance: APIXABAN
     Indication: THROMBOSIS
     Dosage: 2 DF, 2X/DAY, TAKE TWO IN THE MORNING AND TWO AT NIGHT
     Dates: start: 20160303
  4. METHOTREXATE [Concomitant]
     Active Substance: METHOTREXATE

REACTIONS (5)
  - Activities of daily living impaired [Unknown]
  - Thrombosis [Unknown]
  - Vomiting [Unknown]
  - Viral infection [Unknown]
  - Asthenia [Not Recovered/Not Resolved]

NARRATIVE: CASE EVENT DATE: 20160304
